FAERS Safety Report 7605148-6 (Version None)
Quarter: 2011Q3

REPORT INFORMATION
  Report Type: 
  Country: None (occurrence: None)
  Receive Date: 20110713
  Receipt Date: 20110518
  Transmission Date: 20111222
  Serious: Yes (Other)
  Sender: FDA-Public Use
  Company Number: US-BAYER-2011-047984

PATIENT
  Age: 19 Year
  Sex: Female

DRUGS (1)
  1. MIRENA [Suspect]
     Indication: CONTRACEPTION
     Dosage: 20 MCG/24HR, ONCE
     Dates: start: 20101115, end: 20110511

REACTIONS (3)
  - PREGNANCY TEST POSITIVE [None]
  - ABORTION SPONTANEOUS [None]
  - DEVICE EXPULSION [None]
